FAERS Safety Report 5802045-3 (Version None)
Quarter: 2008Q3

REPORT INFORMATION
  Report Type: 
  Country: None (occurrence: None)
  Receive Date: 20080707
  Receipt Date: 20080627
  Transmission Date: 20090109
  Serious: Yes (Death)
  Sender: FDA-Public Use
  Company Number: JP-ASTRAZENECA-2008AP04732

PATIENT
  Age: 77 Year
  Sex: Female

DRUGS (5)
  1. SEROQUEL [Suspect]
     Route: 048
     Dates: start: 20080514, end: 20080612
  2. SEROQUEL [Suspect]
     Route: 048
     Dates: start: 20080613
  3. ARICEPT [Concomitant]
     Route: 048
     Dates: start: 20080514
  4. SILECE [Concomitant]
     Route: 048
     Dates: start: 20080514
  5. RISPERDAL [Concomitant]
     Route: 048
     Dates: start: 20080514

REACTIONS (1)
  - ACUTE MYOCARDIAL INFARCTION [None]
